FAERS Safety Report 7442072-6 (Version None)
Quarter: 2011Q2

REPORT INFORMATION
  Report Type: 
  Country: None (occurrence: None)
  Receive Date: 20110428
  Receipt Date: 20100324
  Transmission Date: 20111010
  Serious: No
  Sender: FDA-Public Use
  Company Number: US-BAYER-201017994NA

PATIENT
  Sex: Female

DRUGS (2)
  1. YAZ [Suspect]
     Indication: CONTRACEPTION
     Dosage: UNK
     Dates: start: 20100101
  2. YAZ [Suspect]
     Indication: ACNE

REACTIONS (2)
  - HYPOMENORRHOEA [None]
  - MENSTRUATION IRREGULAR [None]
